FAERS Safety Report 23994121 (Version 1)
Quarter: 2024Q2

REPORT INFORMATION
  Report Type: Spontaneous
  Country: GB (occurrence: GB)
  Receive Date: 20240620
  Receipt Date: 20240620
  Transmission Date: 20240716
  Serious: Yes (Other)
  Sender: FDA-Public Use
  Company Number: GB-MHRA-EMIS-3034-8a244f7e-56a9-43ae-9da9-d2ad1dff5a05

PATIENT
  Age: 48 Year
  Sex: Male
  Weight: 106 kg

DRUGS (2)
  1. ROSUVASTATIN [Suspect]
     Active Substance: ROSUVASTATIN
     Indication: Arteriosclerosis coronary artery
     Dosage: 1 DOSAGE FORM, DAILY
     Route: 065
     Dates: start: 20240531
  2. ROSUVASTATIN [Concomitant]
     Active Substance: ROSUVASTATIN
     Indication: Arteriosclerosis coronary artery
     Dosage: 1 DOSAGE FORM, DAILY
     Route: 065
     Dates: start: 20240531

REACTIONS (1)
  - Joint swelling [Unknown]
